FAERS Safety Report 7551406-3 (Version None)
Quarter: 2011Q2

REPORT INFORMATION
  Report Type: 
  Country: None (occurrence: None)
  Receive Date: 20110616
  Receipt Date: 20100921
  Transmission Date: 20111010
  Serious: Yes (Other)
  Sender: FDA-Public Use
  Company Number: US-ROCHE-759215

PATIENT
  Sex: Male
  Weight: 88.5 kg

DRUGS (12)
  1. ALLOPURINOL [Concomitant]
  2. KYTRIL [Suspect]
     Indication: NAUSEA
     Route: 065
     Dates: start: 20071001
  3. HEPARIN [Suspect]
     Route: 042
     Dates: start: 20070921
  4. DIPHENHYDRAMINE HCL [Concomitant]
  5. DEXAMETHASONE [Concomitant]
  6. HEPARIN [Suspect]
     Dosage: DOSE: 335 UNITS EVERY HOUR IV DRIP.
     Route: 042
     Dates: start: 20070918
  7. CYTOSAR-U [Concomitant]
  8. DEMEROL [Concomitant]
  9. ESOMEPRAZOLE MAGNESIUM [Concomitant]
  10. ACYCLOVIR [Concomitant]
  11. CERUBIDINE [Concomitant]
  12. ETOPOSIDE [Concomitant]

REACTIONS (16)
  - OROPHARYNGEAL PAIN [None]
  - DIARRHOEA [None]
  - FEBRILE NEUTROPENIA [None]
  - SUBARACHNOID HAEMORRHAGE [None]
  - MYALGIA [None]
  - EPIDIDYMITIS [None]
  - PULMONARY OEDEMA [None]
  - HYPOTENSION [None]
  - MUCOSAL INFLAMMATION [None]
  - SYNCOPE [None]
  - HEADACHE [None]
  - CHILLS [None]
  - JOINT SWELLING [None]
  - SEPSIS [None]
  - INSOMNIA [None]
  - TACHYCARDIA [None]
